FAERS Safety Report 12312859 (Version 10)
Quarter: 2017Q4

REPORT INFORMATION
  Report Type: Spontaneous
  Country: JP (occurrence: JP)
  Receive Date: 20160428
  Receipt Date: 20171102
  Transmission Date: 20180320
  Serious: Yes (Other)
  Sender: FDA-Public Use
  Company Number: JP-ROCHE-1748383

PATIENT
  Age: 73 Year
  Sex: Female

DRUGS (5)
  1. EYLEA [Suspect]
     Active Substance: AFLIBERCEPT
     Dosage: UNK
     Route: 031
     Dates: start: 20160203
  2. LUCENTIS [Suspect]
     Active Substance: RANIBIZUMAB
     Indication: AGE-RELATED MACULAR DEGENERATION
     Dosage: 3 TIMES IN LEFT EYE
     Route: 031
     Dates: start: 2010
  3. EYLEA [Suspect]
     Active Substance: AFLIBERCEPT
     Indication: PRODUCT USED FOR UNKNOWN INDICATION
     Dosage: UNK
     Route: 050
     Dates: start: 20151203
  4. EYLEA [Suspect]
     Active Substance: AFLIBERCEPT
     Dosage: UNK
     Route: 031
     Dates: start: 20160106
  5. LUCENTIS [Suspect]
     Active Substance: RANIBIZUMAB
     Dosage: LEFT AND RIGHT EYE FOR 3 TIMES
     Route: 031
     Dates: start: 201506

REACTIONS (5)
  - Retinal detachment [Unknown]
  - Visual acuity reduced [Unknown]
  - Macular hole [Recovered/Resolved]
  - Age-related macular degeneration [Unknown]
  - Photopsia [Unknown]

NARRATIVE: CASE EVENT DATE: 201506
